FAERS Safety Report 15618870 (Version 1)
Quarter: 2018Q4

REPORT INFORMATION
  Report Type: Spontaneous
  Country: US (occurrence: US)
  Receive Date: 20181114
  Receipt Date: 20181114
  Transmission Date: 20190205
  Serious: Yes (Hospitalization)
  Sender: FDA-Public Use
  Company Number: None

PATIENT
  Age: 49 Year
  Sex: Female
  Weight: 84.15 kg

DRUGS (19)
  1. MEMANTINE HCL [Concomitant]
     Active Substance: MEMANTINE
  2. ESOMEPRAZOLE. [Concomitant]
     Active Substance: ESOMEPRAZOLE MAGNESIUM
  3. ELAVIL [Concomitant]
     Active Substance: AMITRIPTYLINE HYDROCHLORIDE
  4. ONDANSETRON [Concomitant]
     Active Substance: ONDANSETRON
  5. ZOLOFT [Concomitant]
     Active Substance: SERTRALINE HYDROCHLORIDE
  6. BUSPAR [Concomitant]
     Active Substance: BUSPIRONE HYDROCHLORIDE
  7. VITAMIN B12 [Concomitant]
     Active Substance: CYANOCOBALAMIN
  8. VALACYCLOVIR HCL [Concomitant]
     Active Substance: VALACYCLOVIR HYDROCHLORIDE
  9. METOPROLOL SUCCINATE. [Concomitant]
     Active Substance: METOPROLOL SUCCINATE
  10. ZOMIG [Concomitant]
     Active Substance: ZOLMITRIPTAN
  11. COQ10 [Concomitant]
     Active Substance: UBIDECARENONE
  12. B6 [Concomitant]
     Active Substance: PYRIDOXINE HYDROCHLORIDE
  13. ROSUVASTATIN CALCIUM. [Concomitant]
     Active Substance: ROSUVASTATIN CALCIUM
  14. AIMOVIG [Suspect]
     Active Substance: ERENUMAB-AOOE
     Indication: MIGRAINE PROPHYLAXIS
     Dosage: QUANTITY:4 INJECTION(S);OTHER FREQUENCY:ONCE A MONTH;OTHER ROUTE:INJECTION IN THIGH?
  15. TROKENDI [Concomitant]
     Active Substance: TOPIRAMATE
  16. FLUTICASONE. [Concomitant]
     Active Substance: FLUTICASONE
  17. MAGNESIUM [Concomitant]
     Active Substance: MAGNESIUM
  18. LOSARTAN POTASSIUM. [Concomitant]
     Active Substance: LOSARTAN POTASSIUM
  19. IRON [Concomitant]
     Active Substance: IRON

REACTIONS (4)
  - Depression [None]
  - Mood altered [None]
  - Condition aggravated [None]
  - Personality change [None]

NARRATIVE: CASE EVENT DATE: 20181031
